FAERS Safety Report 5403988-5 (Version None)
Quarter: 2007Q3

REPORT INFORMATION
  Report Type: 
  Country: None (occurrence: None)
  Receive Date: 20070802
  Receipt Date: 20070727
  Transmission Date: 20080115
  Serious: Yes (Death, Life-Threatening)
  Sender: FDA-Public Use
  Company Number: B0480078A

PATIENT
  Age: 53 Year
  Sex: Male

DRUGS (5)
  1. PAXIL [Suspect]
     Indication: DRUG USE FOR UNKNOWN INDICATION
     Dosage: 10MG PER DAY
     Route: 048
  2. DOGMATYL [Concomitant]
     Route: 065
  3. FLUNITRAZEPAM [Concomitant]
     Route: 065
  4. METHYCOBAL [Concomitant]
     Route: 065
  5. U PAN [Concomitant]
     Route: 048

REACTIONS (1)
  - COMPLETED SUICIDE [None]
